FAERS Safety Report 6694185-4 (Version None)
Quarter: 2010Q2

REPORT INFORMATION
  Report Type: 
  Country: None (occurrence: None)
  Receive Date: 20100423
  Receipt Date: 20100419
  Transmission Date: 20101027
  Serious: Yes (Death, Other)
  Sender: FDA-Public Use
  Company Number: JP-ROCHE-696024

PATIENT
  Age: 25 Year
  Sex: Female

DRUGS (8)
  1. DIAZEPAM [Suspect]
     Indication: DRUG USE FOR UNKNOWN INDICATION
     Dosage: SERENAMIN
     Route: 048
     Dates: start: 20100405, end: 20100405
  2. LEXOTAN [Suspect]
     Indication: DRUG USE FOR UNKNOWN INDICATION
     Dosage: FORM: PER ORAL AGENT, TAKEN AS NEEDED
     Route: 048
     Dates: start: 20100405, end: 20100405
  3. SILECE [Suspect]
     Indication: DRUG USE FOR UNKNOWN INDICATION
     Dosage: TAKEN AS NEEDED
     Route: 048
     Dates: start: 20100405, end: 20100405
  4. HIRNAMIN [Suspect]
     Indication: DRUG USE FOR UNKNOWN INDICATION
     Route: 048
     Dates: start: 20100405, end: 20100405
  5. LEVOTOMIN [Suspect]
     Indication: DRUG USE FOR UNKNOWN INDICATION
     Dosage: TAKEN AS NEEDED
     Route: 048
     Dates: start: 20100405, end: 20100405
  6. WINTERMIN [Suspect]
     Indication: DRUG USE FOR UNKNOWN INDICATION
     Route: 048
     Dates: start: 20100405, end: 20100405
  7. BIOTAMIN [Suspect]
     Indication: DRUG USE FOR UNKNOWN INDICATION
     Route: 048
     Dates: start: 20100405, end: 20100405
  8. THEO-DUR [Concomitant]
     Dosage: TAKEN AS NEEDED
     Route: 048

REACTIONS (4)
  - ALTERED STATE OF CONSCIOUSNESS [None]
  - MULTIPLE DRUG OVERDOSE INTENTIONAL [None]
  - SHOCK [None]
  - SUICIDE ATTEMPT [None]
